FAERS Safety Report 9413072 (Version 3)
Quarter: 2014Q1

REPORT INFORMATION
  Report Type: Spontaneous
  Country: JP (occurrence: JP)
  Receive Date: 20130722
  Receipt Date: 20140303
  Transmission Date: 20141002
  Serious: Yes (Hospitalization, Disabling)
  Sender: FDA-Public Use
  Company Number: JP-GLAXOSMITHKLINE-B0909404A

PATIENT
  Age: 73 Year
  Sex: Female

DRUGS (2)
  1. HYCAMTIN [Suspect]
     Indication: OVARIAN CANCER RECURRENT
     Dosage: 1.2MGM2 PER DAY
     Route: 042
     Dates: start: 20120227, end: 20120302
  2. KYTRIL [Concomitant]
     Dates: start: 20120227, end: 20120302

REACTIONS (8)
  - Enterocutaneous fistula [Recovering/Resolving]
  - White blood cell count decreased [Recovered/Resolved]
  - Neutrophil count decreased [Unknown]
  - Red blood cell count decreased [Recovering/Resolving]
  - Anaemia [Recovering/Resolving]
  - Platelet count decreased [Recovered/Resolved]
  - Febrile neutropenia [Recovering/Resolving]
  - Hypokalaemia [Recovering/Resolving]
